FAERS Safety Report 4300902-0 (Version None)
Quarter: 2004Q1

REPORT INFORMATION
  Report Type: 
  Country: None (occurrence: None)
  Receive Date: 20040218
  Receipt Date: 20031124
  Transmission Date: 20041129
  Serious: No
  Sender: FDA-Public Use
  Company Number: 2003-10-0730

PATIENT
  Age: 59 Year
  Sex: Female
  Weight: 47.1741 kg

DRUGS (2)
  1. PEG-INTRON [Suspect]
     Indication: HEPATITIS C
     Dosage: ^5 UNITS^ QWK SUBCUTANEOUS
     Route: 058
  2. REBETOL [Suspect]
     Indication: HEPATITIS C
     Dosage: 800 MG QD ORAL
     Route: 048

REACTIONS (3)
  - GASTROINTESTINAL DISORDER [None]
  - INJECTION SITE PAIN [None]
  - WEIGHT DECREASED [None]
